FAERS Safety Report 23902887 (Version 1)
Quarter: 2024Q2

REPORT INFORMATION
  Report Type: Spontaneous
  Country: US (occurrence: US)
  Receive Date: 20240527
  Receipt Date: 20240527
  Transmission Date: 20240716
  Serious: Yes (Hospitalization)
  Sender: FDA-Public Use
  Company Number: US-BRISTOL-MYERS SQUIBB COMPANY-2024-081964

PATIENT
  Age: 94 Year
  Sex: Female

DRUGS (1)
  1. LENALIDOMIDE [Suspect]
     Active Substance: LENALIDOMIDE
     Indication: Myelodysplastic syndrome
     Dosage: 10MG OR TAKE 1 WHOLE CAPSULE BY MOUTHWITH WATER EVERY DAY FOR 28 DAYS. DO NOT BREAK, CHEW OR OPEN
     Route: 048

REACTIONS (1)
  - Hospitalisation [Recovering/Resolving]
